FAERS Safety Report 9255266 (Version 1)
Quarter: 2013Q2

REPORT INFORMATION
  Report Type: Spontaneous
  Country: US (occurrence: None)
  Receive Date: 20130423
  Receipt Date: 20130423
  Transmission Date: 20140414
  Serious: Yes (Life-Threatening, Other)
  Sender: FDA-Public Use
  Company Number: None

PATIENT
  Age: 39 Year
  Sex: Female
  Weight: 49.9 kg

DRUGS (1)
  1. ICLUSIG [Suspect]
     Route: 048
     Dates: start: 20130312, end: 20130326

REACTIONS (2)
  - Convulsion [None]
  - Hypertension [None]
